FAERS Safety Report 5719148-4 (Version None)
Quarter: 2008Q2

REPORT INFORMATION
  Report Type: 
  Country: None (occurrence: None)
  Receive Date: 20080428
  Receipt Date: 20080326
  Transmission Date: 20081010
  Serious: No
  Sender: FDA-Public Use
  Company Number: US-BAYER-200820083NA

PATIENT
  Age: 6 Week

DRUGS (1)
  1. MIRENA [Suspect]
     Route: 063
     Dates: start: 20080206

REACTIONS (1)
  - NO ADVERSE EVENT [None]
